FAERS Safety Report 13461296 (Version 1)
Quarter: 2017Q2

REPORT INFORMATION
  Report Type: Spontaneous
  Country: US (occurrence: US)
  Receive Date: 20170420
  Receipt Date: 20170420
  Transmission Date: 20170830
  Serious: No
  Sender: FDA-Public Use
  Company Number: US-ASTRAZENECA-2017SE38353

PATIENT
  Age: 756 Month
  Sex: Female
  Weight: 81.6 kg

DRUGS (2)
  1. DALIRESP [Suspect]
     Active Substance: ROFLUMILAST
     Indication: BRONCHITIS CHRONIC
     Route: 048
     Dates: start: 20170322, end: 201703
  2. DALIRESP [Suspect]
     Active Substance: ROFLUMILAST
     Indication: CHRONIC OBSTRUCTIVE PULMONARY DISEASE
     Route: 048
     Dates: start: 20170322, end: 201703

REACTIONS (4)
  - Pain [Unknown]
  - Insomnia [Unknown]
  - Intentional product misuse [Unknown]
  - Influenza like illness [Unknown]

NARRATIVE: CASE EVENT DATE: 201703
